FAERS Safety Report 11739884 (Version 2)
Quarter: 2015Q4

REPORT INFORMATION
  Report Type: Spontaneous
  Country: US (occurrence: US)
  Receive Date: 20151110
  Receipt Date: 20151120
  Transmission Date: 20160304
  Serious: No
  Sender: FDA-Public Use
  Company Number: US-ELI_LILLY_AND_COMPANY-US201204009899

PATIENT
  Sex: Female

DRUGS (1)
  1. FORTEO [Suspect]
     Active Substance: TERIPARATIDE
     Indication: OSTEOPOROSIS
     Dosage: 20 UG, QD
     Dates: start: 20120414

REACTIONS (8)
  - Injection site pain [Unknown]
  - Limb discomfort [Unknown]
  - Injection site bruising [Unknown]
  - Nausea [Unknown]
  - Heart rate increased [Unknown]
  - Bursitis [Unknown]
  - Neuralgia [Unknown]
  - Arthralgia [Unknown]
